FAERS Safety Report 23873917 (Version 1)
Quarter: 2024Q2

REPORT INFORMATION
  Report Type: Spontaneous
  Country: US (occurrence: None)
  Receive Date: 20240517
  Receipt Date: 20240517
  Transmission Date: 20240716
  Serious: Yes (Hospitalization, Disabling, Other)
  Sender: FDA-Public Use
  Company Number: None

PATIENT
  Age: 63 Year
  Sex: Female
  Weight: 63 kg

DRUGS (6)
  1. PROLIA [Suspect]
     Active Substance: DENOSUMAB
     Indication: Osteoporosis
     Dates: start: 20170120, end: 20180120
  2. ESOMEPRAZOLE [Concomitant]
  3. Statin [Concomitant]
  4. UNSPECIFIED INGREDIENT [Concomitant]
     Active Substance: UNSPECIFIED INGREDIENT
  5. VITAMIN D [Concomitant]
     Active Substance: VITAMIN D NOS
  6. Caclium [Concomitant]

REACTIONS (7)
  - Urinary tract infection [None]
  - Sepsis [None]
  - Back pain [None]
  - Tinnitus [None]
  - Skin ulcer [None]
  - Tooth infection [None]
  - Bone graft [None]

NARRATIVE: CASE EVENT DATE: 20190912
